FAERS Safety Report 5084685-5 (Version None)
Quarter: 2006Q3

REPORT INFORMATION
  Report Type: 
  Country: None (occurrence: None)
  Receive Date: 20060818
  Receipt Date: 20060818
  Transmission Date: 20061208
  Serious: Yes (Life-Threatening, Hospitalization, Disabling, Other)
  Sender: FDA-Public Use
  Company Number: None

PATIENT
  Age: 28 Year
  Sex: Female
  Weight: 62.5964 kg

DRUGS (2)
  1. ZYBAN [Suspect]
     Indication: SMOKING CESSATION THERAPY
     Dates: start: 20000101, end: 20000301
  2. SSRI [Concomitant]

REACTIONS (13)
  - AMENORRHOEA [None]
  - ANGER [None]
  - ANXIETY [None]
  - BLOOD PRESSURE INCREASED [None]
  - CUSHING'S SYNDROME [None]
  - FATIGUE [None]
  - FEELING ABNORMAL [None]
  - HYPERSENSITIVITY [None]
  - PALPITATIONS [None]
  - RESTLESSNESS [None]
  - STRESS [None]
  - SWELLING FACE [None]
  - WEIGHT INCREASED [None]
